FAERS Safety Report 25100267 (Version 1)
Quarter: 2025Q1

REPORT INFORMATION
  Report Type: Spontaneous
  Country: ES (occurrence: ES)
  Receive Date: 20250320
  Receipt Date: 20250320
  Transmission Date: 20250409
  Serious: Yes (Other)
  Sender: UCB
  Company Number: ES-UCBSA-2025015881

PATIENT
  Age: 6 Year
  Sex: Female
  Weight: 17.8 kg

DRUGS (7)
  1. FINTEPLA [Suspect]
     Active Substance: FENFLURAMINE
     Indication: Severe myoclonic epilepsy of infancy
     Dosage: 0.2 MILLILITER, 2X/DAY (BID)
     Dates: start: 202407, end: 2024
  2. FINTEPLA [Suspect]
     Active Substance: FENFLURAMINE
     Dosage: 0.4 MILLILITER, 2X/DAY (BID)
  3. FINTEPLA [Suspect]
     Active Substance: FENFLURAMINE
     Dosage: 0.6 MILLILITER, 2X/DAY (BID)
  4. FINTEPLA [Suspect]
     Active Substance: FENFLURAMINE
     Dosage: 0.5 MILLILITER, 2X/DAY (BID)
  5. DIACOMIT [Concomitant]
     Active Substance: STIRIPENTOL
     Indication: Severe myoclonic epilepsy of infancy
     Dosage: 5 MILLILITER, 2X/DAY (BID) (1 SACHET IN MORNING AND 1 SACHET IN EVENING)
     Dates: start: 202407
  6. CLOBAZAM [Concomitant]
     Active Substance: CLOBAZAM
     Indication: Severe myoclonic epilepsy of infancy
     Dosage: 5 MILLIGRAM, 2X/DAY (BID)
     Dates: start: 202407
  7. VALPROATE SODIUM [Concomitant]
     Active Substance: VALPROATE SODIUM
     Indication: Severe myoclonic epilepsy of infancy
     Dates: start: 202407

REACTIONS (4)
  - Seizure [Unknown]
  - Petit mal epilepsy [Unknown]
  - Pyrexia [Unknown]
  - Bilateral breast buds [Unknown]

NARRATIVE: CASE EVENT DATE: 20250101
